FAERS Safety Report 5839801-1 (Version None)
Quarter: 2008Q3

REPORT INFORMATION
  Report Type: 
  Country: None (occurrence: None)
  Receive Date: 20080811
  Receipt Date: 20080804
  Transmission Date: 20090109
  Serious: Yes (Hospitalization, Other)
  Sender: FDA-Public Use
  Company Number: FR-ABBOTT-08P-056-0456388-00

PATIENT
  Age: 46 Year
  Sex: Male

DRUGS (6)
  1. KALETRA [Suspect]
     Indication: HIV INFECTION
     Dosage: 1 DOSAGE FORMS
     Route: 048
     Dates: end: 20080519
  2. FUSIDIC ACID [Interacting]
     Indication: ARTHRITIS
     Route: 048
     Dates: start: 20080417, end: 20080430
  3. EMTRICITABINE W/TENOFOVIR [Concomitant]
     Indication: DRUG USE FOR UNKNOWN INDICATION
     Route: 048
  4. OFLOXACINE [Concomitant]
     Indication: ARTHRITIS
     Dosage: IV AND PO
     Dates: start: 20080417, end: 20080430
  5. VANCOMYCIN HCL [Concomitant]
     Indication: ARTHRITIS
     Route: 042
     Dates: start: 20080409, end: 20080417
  6. GENTAMICIN [Concomitant]
     Indication: ARTHRITIS
     Route: 042
     Dates: start: 20080409, end: 20080417

REACTIONS (6)
  - ARTHRITIS [None]
  - CHOLESTASIS [None]
  - DRUG INTERACTION [None]
  - FALL [None]
  - GENERAL PHYSICAL HEALTH DETERIORATION [None]
  - JAUNDICE [None]
